FAERS Safety Report 5116730-2 (Version None)
Quarter: 2006Q3

REPORT INFORMATION
  Report Type: 
  Country: None (occurrence: None)
  Receive Date: 20060928
  Receipt Date: 20060915
  Transmission Date: 20061208
  Serious: Yes (Other)
  Sender: FDA-Public Use
  Company Number: PHMT2006CA01809

PATIENT
  Age: 3 Year
  Sex: Female

DRUGS (1)
  1. TRILEPTAL [Suspect]
     Indication: COMPLEX PARTIAL SEIZURES
     Dosage: 30MG/KG/DAY

REACTIONS (2)
  - ARRHYTHMIA SUPRAVENTRICULAR [None]
  - SPEECH DISORDER [None]
